FAERS Safety Report 16576414 (Version 3)
Quarter: 2019Q4

REPORT INFORMATION
  Report Type: Spontaneous
  Country: BR (occurrence: BR)
  Receive Date: 20190716
  Receipt Date: 20191008
  Transmission Date: 20200122
  Serious: Yes (Hospitalization, Other)
  Sender: FDA-Public Use
  Company Number: BR-BRISTOL-MYERS SQUIBB COMPANY-BMS-2019-067007

PATIENT
  Age: 77 Year
  Sex: Male
  Weight: 96.4 kg

DRUGS (3)
  1. OPDIVO [Suspect]
     Active Substance: NIVOLUMAB
     Indication: CHOLANGIOCARCINOMA
     Dosage: 300 MILLIGRAM
     Route: 042
     Dates: start: 201711, end: 201904
  2. IPILIMUMAB [Suspect]
     Active Substance: IPILIMUMAB
     Indication: CHOLANGIOCARCINOMA
     Dosage: UNK
     Route: 065
     Dates: start: 20180902
  3. FUROSEMIDE. [Suspect]
     Active Substance: FUROSEMIDE
     Indication: PRODUCT USED FOR UNKNOWN INDICATION
     Route: 065

REACTIONS (12)
  - Intentional product use issue [Unknown]
  - Lymphadenopathy [Unknown]
  - Renal tubular necrosis [Recovering/Resolving]
  - Cardiac tamponade [Unknown]
  - Hypothyroidism [Unknown]
  - Thrombotic microangiopathy [Recovering/Resolving]
  - Acute kidney injury [Unknown]
  - Autoimmune nephritis [Unknown]
  - Microangiopathic haemolytic anaemia [Recovering/Resolving]
  - Tubulointerstitial nephritis [Recovering/Resolving]
  - Pneumonitis [Unknown]
  - Pleural effusion [Unknown]

NARRATIVE: CASE EVENT DATE: 20190613
